FAERS Safety Report 7117430-X (Version None)
Quarter: 2010Q4

REPORT INFORMATION
  Report Type: 
  Country: None (occurrence: None)
  Receive Date: 20101122
  Receipt Date: 20101116
  Transmission Date: 20110411
  Serious: Yes (Other)
  Sender: FDA-Public Use
  Company Number: US-PFIZER INC-2010150104

PATIENT
  Sex: Female
  Weight: 16 kg

DRUGS (2)
  1. ZITHROMAX [Suspect]
     Indication: EAR INFECTION
     Dosage: 3.5 ML, DAILY
     Dates: start: 20101112, end: 20101116
  2. TYLENOL (CAPLET) [Concomitant]
     Dosage: UNK

REACTIONS (9)
  - ARTHROPATHY [None]
  - GAIT DISTURBANCE [None]
  - HYPERAESTHESIA [None]
  - JOINT SWELLING [None]
  - MUSCULOSKELETAL STIFFNESS [None]
  - RASH [None]
  - SERUM SICKNESS [None]
  - URTICARIA [None]
  - VIRAL RASH [None]
